FAERS Safety Report 6648012-1 (Version None)
Quarter: 2010Q1

REPORT INFORMATION
  Report Type: 
  Country: None (occurrence: None)
  Receive Date: 20100324
  Receipt Date: 20100318
  Transmission Date: 20100710
  Serious: Yes (Other)
  Sender: FDA-Public Use
  Company Number: US-ELI_LILLY_AND_COMPANY-US201003002488

PATIENT
  Age: 3 Month
  Sex: Female

DRUGS (1)
  1. HUMATROPE [Suspect]
     Indication: BREATHING-RELATED SLEEP DISORDER
     Dosage: 1 MG/M2, DAILY (1/D)

REACTIONS (1)
  - OBSTRUCTIVE AIRWAYS DISORDER [None]
